FAERS Safety Report 4402094-6 (Version None)
Quarter: 2004Q3

REPORT INFORMATION
  Report Type: 
  Country: None (occurrence: None)
  Receive Date: 20040714
  Receipt Date: 20040706
  Transmission Date: 20050211
  Serious: Yes (Other)
  Sender: FDA-Public Use
  Company Number: 2004222327US

PATIENT
  Age: 50 Year
  Sex: Male
  Weight: 106.6 kg

DRUGS (2)
  1. CELEBREX [Suspect]
     Indication: ARTHRITIS
     Dosage: 200 MG, QD AND OCCASIONALLY BID, ORAL
     Route: 048
     Dates: start: 20000101
  2. GLUCOSAMINE/CHONDROITIN [Concomitant]

REACTIONS (4)
  - BLOOD CHOLESTEROL INCREASED [None]
  - CARDIAC FLUTTER [None]
  - CELLULITIS [None]
  - HYPERTENSION [None]
